FAERS Safety Report 7349714-4 (Version None)
Quarter: 2011Q1

REPORT INFORMATION
  Report Type: 
  Country: None (occurrence: None)
  Receive Date: 20110314
  Receipt Date: 20100903
  Transmission Date: 20110831
  Serious: Yes (Other)
  Sender: FDA-Public Use
  Company Number: US-BAYER-201018228NA

PATIENT
  Sex: Female
  Weight: 54 kg

DRUGS (8)
  1. YAZ [Suspect]
     Indication: MENSTRUATION IRREGULAR
  2. OCELLA [Suspect]
     Indication: MENORRHAGIA
     Dosage: UNK UNK, QD
     Dates: start: 20080701, end: 20081201
  3. YASMIN [Suspect]
     Indication: MENSTRUATION IRREGULAR
  4. PEPCID AC [Concomitant]
     Indication: DYSPEPSIA
  5. YASMIN [Suspect]
     Indication: MENORRHAGIA
     Dosage: UNK UNK, QD
     Route: 048
     Dates: start: 20080601
  6. OCELLA [Suspect]
     Indication: MENSTRUATION IRREGULAR
  7. TUMS [CALCIUM CARBONATE] [Concomitant]
     Indication: DYSPEPSIA
  8. YAZ [Suspect]
     Indication: MENORRHAGIA
     Dosage: 1 UNK, UNK
     Route: 048
     Dates: start: 20060601, end: 20060901

REACTIONS (3)
  - BILIARY COLIC [None]
  - CHOLELITHIASIS [None]
  - CHOLECYSTITIS CHRONIC [None]
